FAERS Safety Report 7205405-1 (Version None)
Quarter: 2010Q4

REPORT INFORMATION
  Report Type: 
  Country: None (occurrence: None)
  Receive Date: 20101231
  Receipt Date: 20101220
  Transmission Date: 20110411
  Serious: Yes (Other)
  Sender: FDA-Public Use
  Company Number: BR-PFIZER INC-2010175671

PATIENT
  Age: 49 Year
  Sex: Female

DRUGS (3)
  1. XALATAN [Suspect]
     Route: 047
  2. LATANOPROST [Suspect]
     Dosage: UNK
     Route: 047
     Dates: end: 20101201
  3. PURAN T4 [Concomitant]
     Indication: THYROID DISORDER
     Dosage: UNK
     Dates: start: 19951201

REACTIONS (4)
  - GLAUCOMA SURGERY [None]
  - HYPERSENSITIVITY [None]
  - PRODUCT QUALITY ISSUE [None]
  - PRODUCT SUBSTITUTION ISSUE [None]
